FAERS Safety Report 8535711-X (Version None)
Quarter: 2012Q3

REPORT INFORMATION
  Report Type: 
  Country: None (occurrence: None)
  Receive Date: 20120725
  Receipt Date: 20120723
  Transmission Date: 20120928
  Serious: No
  Sender: FDA-Public Use
  Company Number: US-PFIZER INC-2012178603

PATIENT
  Sex: Male
  Weight: 86.168 kg

DRUGS (3)
  1. SUBOXONE [Interacting]
     Indication: PAIN
     Dosage: UNK
     Dates: start: 20100101
  2. CHANTIX [Suspect]
     Indication: SMOKING CESSATION THERAPY
     Dosage: 0.5 MG, DAILY
     Dates: start: 20120501, end: 20120501
  3. CHANTIX [Interacting]
     Dosage: UNK
     Dates: start: 20120501, end: 20120601

REACTIONS (2)
  - DRUG INEFFECTIVE [None]
  - DRUG INTERACTION [None]
